FAERS Safety Report 8042228-8 (Version None)
Quarter: 2012Q1

REPORT INFORMATION
  Report Type: 
  Country: None (occurrence: None)
  Receive Date: 20120112
  Receipt Date: 20120104
  Transmission Date: 20120608
  Serious: No
  Sender: FDA-Public Use
  Company Number: US-B.I. PHARMACEUTICALS,INC./RIDGEFIELD-2011-BP-25688BP

PATIENT
  Age: 84 Year
  Sex: Male

DRUGS (20)
  1. CARVEDILOL [Concomitant]
     Dosage: 6.25 MG
  2. LIPITOR [Concomitant]
     Indication: BLOOD CHOLESTEROL ABNORMAL
     Dosage: 10 MG
  3. PRADAXA [Suspect]
     Indication: ATRIAL FLUTTER
  4. BENEFIBER [Concomitant]
     Indication: FUNCTIONAL GASTROINTESTINAL DISORDER
  5. COQ10 [Concomitant]
     Indication: MUSCLE DISORDER
     Dosage: 200 MG
  6. PRADAXA [Suspect]
     Indication: CEREBROVASCULAR ACCIDENT PROPHYLAXIS
  7. LEVOTHRYROXINE [Concomitant]
     Indication: THYROID DISORDER
     Dosage: 0.75 MG
  8. ISOSORBIDE MONONITRATE [Concomitant]
     Dosage: 60 MG
  9. VITAMIN D [Concomitant]
     Dosage: 2000 U
  10. COLACE [Concomitant]
     Indication: FUNCTIONAL GASTROINTESTINAL DISORDER
     Dosage: 100 MG
  11. CALCIUM CITRATE [Concomitant]
     Dosage: 250 MG
  12. PRADAXA [Suspect]
     Indication: ATRIAL FIBRILLATION
     Dosage: 300 MG
     Route: 048
     Dates: start: 20111028
  13. RANITIDINE [Concomitant]
     Indication: GASTROOESOPHAGEAL REFLUX DISEASE
     Dosage: 150 MG
  14. HYDROCHLOROTHIAZIDE [Concomitant]
     Dosage: 25 MG
  15. ASPIRIN [Concomitant]
     Dosage: 81 MG
  16. FLOMAX [Concomitant]
     Dosage: 0.4 MG
  17. MEN'S VITAMIN [Concomitant]
  18. NATURAL TEARS [Concomitant]
  19. PROSCAR [Concomitant]
     Indication: PROSTATIC DISORDER
     Dosage: 5 NR
  20. FISH OIL [Concomitant]
     Dosage: 1000 MG

REACTIONS (3)
  - EPISTAXIS [None]
  - CHEST DISCOMFORT [None]
  - CONTUSION [None]
